FAERS Safety Report 10506015 (Version 2)
Quarter: 2015Q1

REPORT INFORMATION
  Report Type: Report from Study
  Country: JP (occurrence: JP)
  Receive Date: 20141008
  Receipt Date: 20150109
  Transmission Date: 20150720
  Serious: Yes (Other)
  Sender: FDA-Public Use
  Company Number: JP-MERCK-1410JPN003820

PATIENT
  Age: 69 Year
  Sex: Female
  Weight: 55 kg

DRUGS (11)
  1. LOXONIN [Concomitant]
     Active Substance: LOXOPROFEN SODIUM
     Indication: PROPHYLAXIS
     Dosage: 60 MG, 1 IN 1 PRN
     Route: 048
     Dates: start: 20140414
  2. LEVOTHYROXINE SODIUM. [Concomitant]
     Active Substance: LEVOTHYROXINE SODIUM
     Dosage: 50 MICROGRAM, 1 IN 1 DAY
     Route: 048
  3. PURSENNID (SENNA) [Concomitant]
     Dosage: 24 MG, 1 IN 1  PRN
     Route: 048
  4. CONIEL [Concomitant]
     Active Substance: BENIDIPINE HYDROCHLORIDE
     Dosage: 2 MG, 1 IN 1 DAY
     Route: 048
  5. PEGINTRON [Suspect]
     Active Substance: PEGINTERFERON ALFA-2B
     Indication: CHRONIC HEPATITIS C
     Dosage: 1.5 MICROGRAM PER KILOGRAM, 1 IN 1 WEEK
     Route: 058
     Dates: start: 20140414, end: 20140929
  6. RIBAVIRIN. [Suspect]
     Active Substance: RIBAVIRIN
     Dosage: 500 MG, 1 IN 1 DAY
     Route: 058
     Dates: start: 20140708, end: 20140804
  7. RIBAVIRIN. [Suspect]
     Active Substance: RIBAVIRIN
     Dosage: 400 MG, 1 IN 1 DAY
     Route: 058
     Dates: start: 20140805, end: 20140929
  8. SIMEPREVIR [Suspect]
     Active Substance: SIMEPREVIR
     Indication: CHRONIC HEPATITIS C
     Dosage: 100 MG, 1 IN 1 DAY
     Route: 048
     Dates: start: 20140414, end: 20140707
  9. LENDORMIN [Concomitant]
     Active Substance: BROTIZOLAM
     Dosage: 0.25 MG, QD
     Route: 048
     Dates: start: 20140414
  10. RIBAVIRIN. [Suspect]
     Active Substance: RIBAVIRIN
     Indication: CHRONIC HEPATITIS C
     Dosage: 600 MG, 1 IN 1 DAY
     Route: 058
     Dates: start: 20140414, end: 20140707
  11. BROTIZOLAM [Concomitant]
     Active Substance: BROTIZOLAM
     Dosage: 0.25 MG, 1 IN 1 PRN
     Route: 048

REACTIONS (5)
  - Platelet count decreased [Recovering/Resolving]
  - Stomatitis [Recovered/Resolved]
  - Haemoglobin decreased [Recovering/Resolving]
  - Blood bilirubin increased [Recovered/Resolved]
  - Gastrooesophageal reflux disease [Recovered/Resolved]

NARRATIVE: CASE EVENT DATE: 20140417
